FAERS Safety Report 6190886-5 (Version None)
Quarter: 2009Q2

REPORT INFORMATION
  Report Type: 
  Country: None (occurrence: None)
  Receive Date: 20090514
  Receipt Date: 20090504
  Transmission Date: 20091009
  Serious: Yes (Hospitalization)
  Sender: FDA-Public Use
  Company Number: GB-BAXTER-2009BH008014

PATIENT
  Age: 62 Year
  Sex: Female
  Weight: 62 kg

DRUGS (7)
  1. CYCLOPHOSPHAMIDE [Suspect]
     Indication: LYMPHOMA
     Route: 065
  2. NEULASTA [Suspect]
     Indication: COLONY STIMULATING FACTOR PROPHYLAXIS
     Route: 065
  3. BEVACIZUMAB [Suspect]
     Indication: LYMPHOMA
     Route: 042
     Dates: start: 20090211, end: 20090226
  4. RITUXIMAB [Suspect]
     Indication: LYMPHOMA
     Route: 065
  5. DOXORUBICIN HCL [Suspect]
     Indication: LYMPHOMA
     Route: 065
  6. VINCRISTINE SULFATE [Suspect]
     Indication: LYMPHOMA
     Route: 065
  7. PREDNISONE [Suspect]
     Indication: LYMPHOMA
     Route: 065

REACTIONS (3)
  - BACK PAIN [None]
  - NAUSEA [None]
  - VOMITING [None]
